FAERS Safety Report 8090395-2 (Version None)
Quarter: 2012Q1

REPORT INFORMATION
  Report Type: 
  Country: None (occurrence: None)
  Receive Date: 20120129
  Receipt Date: 20111130
  Transmission Date: 20120608
  Serious: No
  Sender: FDA-Public Use
  Company Number: US-ABBOTT-11P-163-0879787-00

PATIENT
  Sex: Male
  Weight: 136.2 kg

DRUGS (10)
  1. HUMIRA [Suspect]
     Indication: PSORIASIS
     Dates: start: 20100101
  2. TRICOR [Concomitant]
     Indication: BLOOD CHOLESTEROL INCREASED
  3. TRAMADOL HCL [Concomitant]
     Indication: PAIN
  4. METFFORMIN HYDROCHLORIDE [Concomitant]
     Indication: DIABETES MELLITUS
  5. SIMVASTATIN [Concomitant]
     Indication: BLOOD CHOLESTEROL INCREASED
  6. POTASSIUM CHLORIDE [Concomitant]
     Indication: ELECTROLYTE SUBSTITUTION THERAPY
  7. LANTUS [Concomitant]
     Indication: DIABETES MELLITUS
     Dosage: 40 UNIT DAILY
  8. AMLODIPINE [Concomitant]
     Indication: HYPERTENSION
  9. LASIX [Concomitant]
     Indication: DIURETIC THERAPY
  10. ATENOLOL [Concomitant]
     Indication: HYPERTENSION

REACTIONS (1)
  - DRUG INEFFECTIVE [None]
